FAERS Safety Report 6150147-7 (Version None)
Quarter: 2009Q2

REPORT INFORMATION
  Report Type: 
  Country: None (occurrence: None)
  Receive Date: 20090408
  Receipt Date: 20090408
  Transmission Date: 20091009
  Serious: No
  Sender: FDA-Public Use
  Company Number: None

PATIENT
  Age: 64 Year
  Sex: Male

DRUGS (1)
  1. VARENICLINE [Suspect]
     Indication: SMOKING CESSATION THERAPY
     Dosage: 1 MG BID PO
     Route: 048
     Dates: start: 20081001, end: 20081124

REACTIONS (3)
  - INSOMNIA [None]
  - IRRITABILITY [None]
  - MOOD SWINGS [None]
